FAERS Safety Report 7967858-0 (Version None)
Quarter: 2011Q4

REPORT INFORMATION
  Report Type: 
  Country: None (occurrence: None)
  Receive Date: 20111209
  Receipt Date: 20111201
  Transmission Date: 20120403
  Serious: Yes (Other)
  Sender: FDA-Public Use
  Company Number: BR-BAYER-2011-115660

PATIENT
  Sex: Female
  Weight: 51 kg

DRUGS (4)
  1. LAMOTRIGINE [Concomitant]
     Indication: MOOD ALTERED
     Dosage: 1 DF, QD
     Route: 048
     Dates: start: 20100101
  2. YASMIN [Suspect]
     Indication: CONTRACEPTION
     Dosage: 1 DF, QD
     Route: 048
     Dates: end: 20111101
  3. GESTODENE AND ETHINYL ESTRADIOL [Suspect]
     Indication: CONTRACEPTION
     Dosage: UNK
     Dates: start: 20060101, end: 20080101
  4. SERTRALINE HYDROCHLORIDE [Concomitant]
     Indication: DEPRESSION
     Dosage: 1 DF, QD
     Route: 048
     Dates: start: 20110501

REACTIONS (2)
  - VAGINAL HAEMORRHAGE [None]
  - ACNE [None]
